FAERS Safety Report 24841934 (Version 1)
Quarter: 2025Q1

REPORT INFORMATION
  Report Type: Report from Study
  Country: US (occurrence: US)
  Receive Date: 20250114
  Receipt Date: 20250114
  Transmission Date: 20250409
  Serious: Yes (Other)
  Sender: ABBVIE
  Company Number: US-ABBVIE-6085835

PATIENT

DRUGS (3)
  1. ELAGOLIX [Suspect]
     Active Substance: ELAGOLIX
     Indication: Maternal exposure timing unspecified
     Route: 064
  2. COCAINE [Suspect]
     Active Substance: COCAINE
     Indication: Product used for unknown indication
  3. BUPRENORPHINE [Suspect]
     Active Substance: BUPRENORPHINE
     Indication: Product used for unknown indication

REACTIONS (5)
  - Neonatal respiratory distress syndrome [Unknown]
  - Small for dates baby [Unknown]
  - Foetal exposure during pregnancy [Unknown]
  - Premature baby [Unknown]
  - Foetal exposure during pregnancy [Unknown]

NARRATIVE: CASE EVENT DATE: 20240508
